FAERS Safety Report 7395488-0 (Version None)
Quarter: 2011Q2

REPORT INFORMATION
  Report Type: 
  Country: None (occurrence: None)
  Receive Date: 20110405
  Receipt Date: 20110329
  Transmission Date: 20111010
  Serious: Yes (Other)
  Sender: FDA-Public Use
  Company Number: CN-PFIZER INC-2011068947

PATIENT
  Age: 85 Year

DRUGS (1)
  1. ZYVOX [Suspect]
     Indication: PNEUMONIA STAPHYLOCOCCAL
     Dosage: UNK

REACTIONS (2)
  - DISEASE RECURRENCE [None]
  - PNEUMONIA STAPHYLOCOCCAL [None]
